FAERS Safety Report 13728037 (Version 2)
Quarter: 2017Q3

REPORT INFORMATION
  Report Type: Spontaneous
  Country: US (occurrence: US)
  Receive Date: 20170707
  Receipt Date: 20170718
  Transmission Date: 20171127
  Serious: No
  Sender: FDA-Public Use
  Company Number: US-TEVA-785574ACC

PATIENT
  Age: 37 Year
  Sex: Female
  Weight: 59.02 kg

DRUGS (1)
  1. PARAGARD T 380A [Suspect]
     Active Substance: COPPER
     Indication: CONTRACEPTION
     Dosage: OVER 10 YEARS
     Dates: start: 2006

REACTIONS (7)
  - Skin disorder [Not Recovered/Not Resolved]
  - Dermatitis contact [Not Recovered/Not Resolved]
  - Dyspepsia [Not Recovered/Not Resolved]
  - Intentional product use issue [Unknown]
  - Menstruation irregular [Not Recovered/Not Resolved]
  - Food allergy [Not Recovered/Not Resolved]
  - Allergy to metals [Recovered/Resolved]
